FAERS Safety Report 15939738 (Version 3)
Quarter: 2020Q1

REPORT INFORMATION
  Report Type: Spontaneous
  Country: US (occurrence: US)
  Receive Date: 20190208
  Receipt Date: 20200309
  Transmission Date: 20200409
  Serious: Yes (Other)
  Sender: FDA-Public Use
  Company Number: US-ASTRAZENECA-2019SE11280

PATIENT
  Age: 24626 Day
  Sex: Female

DRUGS (20)
  1. LISINOPRIL. [Concomitant]
     Active Substance: LISINOPRIL
  2. AZITHROMYCIN ANHYDROUS. [Concomitant]
     Active Substance: AZITHROMYCIN ANHYDROUS
  3. ASPIRIN. [Concomitant]
     Active Substance: ASPIRIN
  4. PRILOSEC [Suspect]
     Active Substance: OMEPRAZOLE MAGNESIUM
     Indication: HIATUS HERNIA
     Dosage: GENERIC
     Route: 065
  5. PREVACID [Suspect]
     Active Substance: LANSOPRAZOLE
     Indication: HIATUS HERNIA
     Route: 065
     Dates: start: 19970101
  6. CALCIUM [Concomitant]
     Active Substance: CALCIUM
  7. PRILOSEC [Suspect]
     Active Substance: OMEPRAZOLE MAGNESIUM
     Indication: DYSPEPSIA
     Dosage: GENERIC
     Route: 065
  8. PRILOSEC [Suspect]
     Active Substance: OMEPRAZOLE MAGNESIUM
     Indication: DYSPEPSIA
     Route: 048
     Dates: start: 20170912
  9. PREVACID [Suspect]
     Active Substance: LANSOPRAZOLE
     Indication: HIATUS HERNIA
     Dosage: FOR MULTIPLE AND VARIOUS YEARS
     Route: 065
  10. CARVEDILOL. [Concomitant]
     Active Substance: CARVEDILOL
  11. SIMVASTATIN. [Concomitant]
     Active Substance: SIMVASTATIN
  12. FLUOXETINE [Concomitant]
     Active Substance: FLUOXETINE HYDROCHLORIDE
  13. PRILOSEC [Suspect]
     Active Substance: OMEPRAZOLE MAGNESIUM
     Indication: DYSPEPSIA
     Route: 048
     Dates: start: 19970101
  14. PRILOSEC [Suspect]
     Active Substance: OMEPRAZOLE MAGNESIUM
     Indication: HIATUS HERNIA
     Route: 048
     Dates: start: 19970101
  15. PRILOSEC [Suspect]
     Active Substance: OMEPRAZOLE MAGNESIUM
     Indication: HIATUS HERNIA
     Dosage: FOR MULTIPLE AND VARIOUS YEARS
     Route: 048
  16. METFORMIN [Concomitant]
     Active Substance: METFORMIN HYDROCHLORIDE
  17. PRAVASTATIN. [Concomitant]
     Active Substance: PRAVASTATIN
  18. PRILOSEC [Suspect]
     Active Substance: OMEPRAZOLE MAGNESIUM
     Indication: DYSPEPSIA
     Dosage: FOR MULTIPLE AND VARIOUS YEARS
     Route: 048
  19. PRILOSEC [Suspect]
     Active Substance: OMEPRAZOLE MAGNESIUM
     Indication: HIATUS HERNIA
     Route: 048
     Dates: start: 20170912
  20. ATENOLOL. [Concomitant]
     Active Substance: ATENOLOL

REACTIONS (5)
  - Rebound acid hypersecretion [Unknown]
  - Chronic kidney disease [Not Recovered/Not Resolved]
  - Renal failure [Unknown]
  - Acute kidney injury [Unknown]
  - Renal injury [Unknown]

NARRATIVE: CASE EVENT DATE: 20160510
